FAERS Safety Report 12963265 (Version 1)
Quarter: 2016Q4

REPORT INFORMATION
  Report Type: Spontaneous
  Country: US (occurrence: US)
  Receive Date: 20161122
  Receipt Date: 20161122
  Transmission Date: 20170207
  Serious: Yes (Other)
  Sender: FDA-Public Use
  Company Number: US-BAUSCH-BL-2016-028316

PATIENT
  Age: 57 Year
  Sex: Male

DRUGS (5)
  1. PREDNISONE. [Concomitant]
     Active Substance: PREDNISONE
     Indication: COLITIS
     Dosage: WAS STARTED ON PREDNISONE WITH TAPER
  2. MESALAZINE [Suspect]
     Active Substance: MESALAMINE
     Route: 065
  3. MESALAZINE [Suspect]
     Active Substance: MESALAMINE
     Indication: COLITIS
     Route: 065
  4. MESALAZINE [Suspect]
     Active Substance: MESALAMINE
     Route: 065
  5. MESALAZINE [Suspect]
     Active Substance: MESALAMINE
     Route: 065

REACTIONS (1)
  - Thrombocytopenia [Recovered/Resolved]
